FAERS Safety Report 9369213 (Version 1)
Quarter: 2013Q2

REPORT INFORMATION
  Report Type: Report from Study
  Country: AR (occurrence: AR)
  Receive Date: 20130626
  Receipt Date: 20130626
  Transmission Date: 20140414
  Serious: Yes (Other)
  Sender: FDA-Public Use
  Company Number: PHHY2013AR065377

PATIENT
  Age: 47 Year
  Sex: Female

DRUGS (1)
  1. DIOVAN [Suspect]
     Indication: HYPERTENSION
     Dosage: 160 MG, DAILY
     Route: 048

REACTIONS (5)
  - Road traffic accident [Recovering/Resolving]
  - Head injury [Recovering/Resolving]
  - Headache [Recovering/Resolving]
  - Spinal cord injury [Recovering/Resolving]
  - Spinal pain [Recovering/Resolving]
